FAERS Safety Report 6275994-2 (Version None)
Quarter: 2009Q3

REPORT INFORMATION
  Report Type: 
  Country: None (occurrence: None)
  Receive Date: 20090720
  Receipt Date: 20090713
  Transmission Date: 20100115
  Serious: No
  Sender: FDA-Public Use
  Company Number: 20096807

PATIENT
  Age: 24 Year
  Sex: Male

DRUGS (1)
  1. LIORESAL [Suspect]
     Indication: MUSCLE SPASTICITY
     Dosage: MCG, DAILY, INTRATHECAL
     Route: 037

REACTIONS (8)
  - DEVICE RELATED INFECTION [None]
  - ERYTHEMA [None]
  - INTRACRANIAL HYPOTENSION [None]
  - KLEBSIELLA INFECTION [None]
  - MENINGITIS [None]
  - PYREXIA [None]
  - SWELLING [None]
  - WOUND DEHISCENCE [None]
